FAERS Safety Report 5546780-3 (Version None)
Quarter: 2007Q4

REPORT INFORMATION
  Report Type: 
  Country: None (occurrence: None)
  Receive Date: 20071211
  Receipt Date: 20071129
  Transmission Date: 20080405
  Serious: Yes (Life-Threatening)
  Sender: FDA-Public Use
  Company Number: FR-ROCHE-534330

PATIENT
  Age: 49 Year
  Sex: Female

DRUGS (6)
  1. ROVALCYTE [Suspect]
     Indication: TRANSPLANT
     Route: 048
     Dates: start: 20070723, end: 20070824
  2. PROGRAF [Suspect]
     Indication: TRANSPLANT
     Route: 048
     Dates: start: 20070723, end: 20070829
  3. INIPOMP [Concomitant]
     Indication: TRANSPLANT
     Route: 048
  4. DELURSAN [Concomitant]
     Indication: TRANSPLANT
     Dosage: DOSE REPORTED AS 250 TWICE
  5. TARDYFERON [Concomitant]
     Indication: TRANSPLANT
  6. FRAXIPARINE [Concomitant]
     Indication: TRANSPLANT
     Dosage: DRUG RPTD AS FRAXIPARINE 2
     Route: 058

REACTIONS (2)
  - BONE MARROW FAILURE [None]
  - GENERALISED ERYTHEMA [None]
